FAERS Safety Report 18406148 (Version 1)
Quarter: 2020Q4

REPORT INFORMATION
  Report Type: Report from Study
  Country: KR (occurrence: KR)
  Receive Date: 20201020
  Receipt Date: 20201020
  Transmission Date: 20210114
  Serious: Yes (Other)
  Sender: FDA-Public Use
  Company Number: KR-JNJFOC-A-CH2019-187842

PATIENT
  Age: 37 Year
  Sex: Female
  Weight: 51 kg

DRUGS (11)
  1. UPTRAVI [Suspect]
     Active Substance: SELEXIPAG
     Indication: PULMONARY ARTERIAL HYPERTENSION
     Dosage: 400 UG, QD
     Route: 048
     Dates: start: 20180112, end: 20180128
  2. UPTRAVI [Suspect]
     Active Substance: SELEXIPAG
     Dosage: 800 UG, QD
     Route: 048
     Dates: start: 20180130, end: 20180205
  3. UPTRAVI [Suspect]
     Active Substance: SELEXIPAG
     Dosage: 400UG AM AND 200UG PM
     Route: 048
     Dates: start: 20180327, end: 20180327
  4. OPSUMIT [Concomitant]
     Active Substance: MACITENTAN
     Indication: PULMONARY ARTERIAL HYPERTENSION
     Dosage: 10 MG, QD
     Route: 048
     Dates: start: 20160520
  5. UPTRAVI [Suspect]
     Active Substance: SELEXIPAG
     Dosage: 1200 UG, QD
     Route: 048
     Dates: start: 20180207, end: 201802
  6. UPTRAVI [Suspect]
     Active Substance: SELEXIPAG
     Dosage: 400UG AM AND 600UG PM
     Route: 048
     Dates: start: 20180206, end: 20180206
  7. UPTRAVI [Suspect]
     Active Substance: SELEXIPAG
     Dosage: 800 UG, QD
     Route: 048
     Dates: start: 20180223, end: 20180326
  8. UPTRAVI [Suspect]
     Active Substance: SELEXIPAG
     Dosage: 400 UG, QD
     Route: 048
     Dates: start: 20180328, end: 20180702
  9. UDENAFIL [Concomitant]
     Active Substance: UDENAFIL
     Indication: PULMONARY ARTERIAL HYPERTENSION
     Dosage: 100 MG, QD
     Route: 048
     Dates: start: 20170925
  10. UPTRAVI [Suspect]
     Active Substance: SELEXIPAG
     Dosage: 200UG AM AND 400UG PM
     Route: 048
     Dates: start: 20180129, end: 20180129
  11. UPTRAVI [Suspect]
     Active Substance: SELEXIPAG
     Route: 048
     Dates: start: 20180220, end: 20180222

REACTIONS (5)
  - Headache [Recovered/Resolved]
  - Chest pain [Recovered/Resolved]
  - Nasopharyngitis [Recovered/Resolved]
  - Pericarditis [Recovered/Resolved]
  - Myalgia [Recovered/Resolved]

NARRATIVE: CASE EVENT DATE: 201801
